FAERS Safety Report 8456137-3 (Version None)
Quarter: 2012Q2

REPORT INFORMATION
  Report Type: 
  Country: None (occurrence: None)
  Receive Date: 20120621
  Receipt Date: 20120612
  Transmission Date: 20120825
  Serious: Yes (Hospitalization, Other)
  Sender: FDA-Public Use
  Company Number: JP-ROCHE-1074494

PATIENT
  Sex: Male

DRUGS (27)
  1. MIRCERA [Suspect]
     Route: 042
     Dates: start: 20120213, end: 20120409
  2. XYLOCAINE [Concomitant]
     Dosage: PROPERLY
     Route: 054
     Dates: end: 20120401
  3. FOSRENOL [Concomitant]
     Route: 048
     Dates: start: 20120123, end: 20120401
  4. MIRCERA [Suspect]
     Indication: NEPHROGENIC ANAEMIA
     Route: 042
     Dates: start: 20110912, end: 20111010
  5. ATELEC [Concomitant]
     Route: 048
     Dates: end: 20120509
  6. DIOVAN [Concomitant]
     Route: 048
     Dates: end: 20120509
  7. TORSEMIDE [Concomitant]
     Route: 048
     Dates: end: 20120418
  8. ADALAT CC [Concomitant]
     Route: 048
     Dates: start: 20110516, end: 20110529
  9. ADALAT CC [Concomitant]
     Route: 048
     Dates: start: 20110530, end: 20110626
  10. ADALAT CC [Concomitant]
     Route: 048
     Dates: start: 20110627, end: 20120426
  11. PRAMIPEXOLE DIHYDROCHLORIDE [Concomitant]
     Indication: PROPHYLAXIS
     Route: 048
     Dates: start: 20120113, end: 20120418
  12. CARBADOGEN [Concomitant]
     Route: 048
     Dates: end: 20120509
  13. LANSOPRAZOLE [Concomitant]
     Route: 048
     Dates: end: 20120509
  14. MIRCERA [Suspect]
     Route: 042
     Dates: start: 20120514, end: 20120514
  15. ONEALFA [Concomitant]
     Route: 048
     Dates: end: 20111128
  16. FOSRENOL [Concomitant]
     Route: 048
     Dates: start: 20111128, end: 20120122
  17. FOSRENOL [Concomitant]
     Route: 048
     Dates: start: 20120402, end: 20120418
  18. ENALAPRIL MALEATE [Concomitant]
     Route: 048
     Dates: end: 20120426
  19. VITAMIN B12 [Concomitant]
     Route: 048
     Dates: end: 20120418
  20. LECICARBON [Concomitant]
     Route: 054
     Dates: start: 20111212, end: 20120418
  21. MIRCERA [Suspect]
     Route: 042
     Dates: start: 20111114, end: 20120109
  22. FOSRENOL [Concomitant]
     Route: 048
     Dates: end: 20111127
  23. ARGAMATE [Concomitant]
     Route: 048
     Dates: end: 20120418
  24. IRON SUCROSE [Concomitant]
     Route: 042
     Dates: start: 20111003, end: 20111226
  25. IRON SUCROSE [Concomitant]
     Route: 042
     Dates: start: 20120305
  26. SELTOUCH [Concomitant]
     Dosage: PROPERLY
     Route: 050
     Dates: start: 20120120, end: 20120401
  27. ADALAT CC [Concomitant]
     Route: 048
     Dates: start: 20120427, end: 20120509

REACTIONS (9)
  - DYSPNOEA [None]
  - SUPRAVENTRICULAR EXTRASYSTOLES [None]
  - HYPOAESTHESIA [None]
  - ABDOMINAL PAIN UPPER [None]
  - LARGE INTESTINE CARCINOMA [None]
  - HYPOKALAEMIA [None]
  - SHUNT OCCLUSION [None]
  - INTESTINAL OBSTRUCTION [None]
  - HYPOGLYCAEMIA [None]
